FAERS Safety Report 5577649-6 (Version None)
Quarter: 2007Q4

REPORT INFORMATION
  Report Type: 
  Country: None (occurrence: None)
  Receive Date: 20071227
  Receipt Date: 20071218
  Transmission Date: 20080405
  Serious: Yes (Hospitalization, Other)
  Sender: FDA-Public Use
  Company Number: 2007US003183

PATIENT
  Age: 40 Year
  Sex: Male

DRUGS (6)
  1. PROGRAF [Suspect]
     Indication: LIVER TRANSPLANT
  2. AZATHIOPRINE [Concomitant]
  3. PREDNISOLONE ACETATE [Concomitant]
  4. LAMIVUDINE [Concomitant]
  5. OMEPRAZOLE [Concomitant]
  6. INSULIN (INSULIN HUMAN) [Concomitant]

REACTIONS (7)
  - BILE DUCT OBSTRUCTION [None]
  - CHOLANGITIS CHRONIC [None]
  - ENTEROCOCCAL INFECTION [None]
  - ESCHERICHIA SEPSIS [None]
  - IMPAIRED GASTRIC EMPTYING [None]
  - POST PROCEDURAL COMPLICATION [None]
  - SEPTIC SHOCK [None]
